FAERS Safety Report 7033273-X (Version None)
Quarter: 2010Q4

REPORT INFORMATION
  Report Type: 
  Country: None (occurrence: None)
  Receive Date: 20101007
  Receipt Date: 20100930
  Transmission Date: 20110411
  Serious: Yes (Hospitalization)
  Sender: FDA-Public Use
  Company Number: A0884232A

PATIENT
  Age: 53 Year
  Sex: Female

DRUGS (12)
  1. LOVAZA [Suspect]
     Dosage: 1G THREE TIMES PER DAY
     Route: 048
     Dates: start: 20100826, end: 20100923
  2. ZOFRAN [Concomitant]
  3. BENADRYL [Concomitant]
  4. KLONOPIN [Concomitant]
  5. BUSPAR [Concomitant]
  6. NAPROXEN [Concomitant]
  7. VITAMIN B-12 [Concomitant]
  8. VITAMIN D3 [Concomitant]
  9. FOLIC ACID [Concomitant]
  10. MULTI-VITAMIN [Concomitant]
  11. PROMETHAZINE [Concomitant]
  12. LIPITOR [Concomitant]

REACTIONS (22)
  - ABDOMINAL PAIN UPPER [None]
  - CHEST DISCOMFORT [None]
  - CONFUSIONAL STATE [None]
  - DEPRESSION [None]
  - DIPLEGIA [None]
  - DIZZINESS [None]
  - DYSGEUSIA [None]
  - ERUCTATION [None]
  - FALL [None]
  - HEAD INJURY [None]
  - LABORATORY TEST ABNORMAL [None]
  - MIGRAINE [None]
  - PRURITUS [None]
  - PYREXIA [None]
  - SPEECH DISORDER [None]
  - SUICIDAL IDEATION [None]
  - SWELLING FACE [None]
  - SWOLLEN TONGUE [None]
  - TREMOR [None]
  - URINARY TRACT DISORDER [None]
  - VOMITING [None]
  - WEIGHT DECREASED [None]
